FAERS Safety Report 16655897 (Version 1)
Quarter: 2019Q3

REPORT INFORMATION
  Report Type: Spontaneous
  Country: FR (occurrence: FR)
  Receive Date: 20190801
  Receipt Date: 20190801
  Transmission Date: 20191004
  Serious: Yes (Hospitalization)
  Sender: FDA-Public Use
  Company Number: FR-TEVA-2019-FR-1085874

PATIENT
  Age: 56 Year
  Sex: Female
  Weight: 69 kg

DRUGS (3)
  1. TEGRETOL [Suspect]
     Active Substance: CARBAMAZEPINE
     Indication: EPILEPSY
     Dosage: 200 MG
     Route: 048
     Dates: start: 20190604, end: 20190620
  2. PANTOPRAZOLE [Suspect]
     Active Substance: PANTOPRAZOLE
     Dosage: 40 MG
     Route: 048
     Dates: start: 2019, end: 20190617
  3. PHLOROGLUCINOL (TRIMETHYL ETHER DU) [Suspect]
     Active Substance: 1,3,5-TRIMETHOXYBENZENE
     Indication: ABDOMINAL PAIN
     Dosage: 480 MG
     Route: 048
     Dates: start: 2019, end: 20190623

REACTIONS (2)
  - Rash maculo-papular [Recovered/Resolved]
  - Pseudolymphoma [Unknown]

NARRATIVE: CASE EVENT DATE: 20190614
